FAERS Safety Report 10428546 (Version 1)
Quarter: 2014Q3

REPORT INFORMATION
  Report Type: Spontaneous
  Country: MA (occurrence: MA)
  Receive Date: 20140903
  Receipt Date: 20140903
  Transmission Date: 20150326
  Serious: Yes (Death, Hospitalization)
  Sender: FDA-Public Use
  Company Number: MA-TAKEDA-2014TUS007859

PATIENT
  Age: 16 Year

DRUGS (1)
  1. COLCHICINE. [Suspect]
     Active Substance: COLCHICINE
     Dosage: 1 MG X 40 PILL
     Route: 048

REACTIONS (4)
  - Toxicity to various agents [Fatal]
  - Intentional overdose [Fatal]
  - Multi-organ failure [Fatal]
  - Completed suicide [Fatal]
